FAERS Safety Report 8837913 (Version 1)
Quarter: 2012Q4

REPORT INFORMATION
  Report Type: 
  Country: US (occurrence: US)
  Receive Date: 20121012
  Receipt Date: 20121012
  Transmission Date: 20130627
  Serious: Yes (Other)
  Sender: FDA-Public Use
  Company Number: US-ROCHE-1131275

PATIENT
  Sex: Female

DRUGS (3)
  1. RITUXAN [Suspect]
     Indication: LYMPHOMA
     Dosage: 728 mg in 500 cc normal saline
     Route: 065
     Dates: start: 20010809
  2. TYLENOL [Concomitant]
     Route: 048
  3. BENADRYL [Concomitant]
     Route: 048

REACTIONS (9)
  - Oxygen saturation decreased [Not Recovered/Not Resolved]
  - Feeling cold [Recovered/Resolved]
  - Pharyngeal hypoaesthesia [Recovered/Resolved]
  - Cough [Recovered/Resolved]
  - Dyspnoea [Recovered/Resolved]
  - Chest discomfort [Recovered/Resolved]
  - Tremor [Recovered/Resolved]
  - Body temperature increased [Not Recovered/Not Resolved]
  - Anxiety [Unknown]
